FAERS Safety Report 21151650 (Version 1)
Quarter: 2022Q3

REPORT INFORMATION
  Report Type: Spontaneous
  Country: FR (occurrence: FR)
  Receive Date: 20220730
  Receipt Date: 20220730
  Transmission Date: 20221027
  Serious: Yes (Hospitalization)
  Sender: FDA-Public Use
  Company Number: None

PATIENT
  Age: 73 Year
  Sex: Female

DRUGS (4)
  1. CARBOPLATIN [Suspect]
     Active Substance: CARBOPLATIN
     Indication: Ovarian epithelial cancer
     Dosage: STRENGTH: 10 MG/ ML, D1, D8 AND D15 WITH RESTART AT D29
     Dates: start: 20220311
  2. PACLITAXEL [Suspect]
     Active Substance: PACLITAXEL
     Indication: Ovarian epithelial cancer
     Dosage: STRENGTH: 6 MG/ML,D1, D8 AND D15 WITH RESTART AT D29
     Dates: start: 20220311
  3. METHYLPREDNISOLONE [Suspect]
     Active Substance: METHYLPREDNISOLONE
     Indication: Ovarian epithelial cancer
     Dosage: D1, D8 AND D15 WITH RESTART AT D29
     Dates: start: 20220311
  4. POLARAMINE [Suspect]
     Active Substance: DEXCHLORPHENIRAMINE MALEATE
     Indication: Drug hypersensitivity
     Dosage: D1, D8 AND D15 WITH RESTART AT D29
     Dates: start: 20220311

REACTIONS (2)
  - Catheter site extravasation [Recovering/Resolving]
  - Catheter site oedema [Recovering/Resolving]

NARRATIVE: CASE EVENT DATE: 20220513
